FAERS Safety Report 17679704 (Version 2)
Quarter: 2020Q4

REPORT INFORMATION
  Report Type: Spontaneous
  Country: US (occurrence: US)
  Receive Date: 20200417
  Receipt Date: 20201124
  Transmission Date: 20210113
  Serious: No
  Sender: FDA-Public Use
  Company Number: US-SA-2020SA096053

PATIENT

DRUGS (2)
  1. DUPIXENT [Suspect]
     Active Substance: DUPILUMAB
     Indication: DERMATITIS ATOPIC
     Dosage: 300 MG, QOW
     Route: 058
     Dates: start: 20191115
  2. AMLODIPINE [Concomitant]
     Active Substance: AMLODIPINE BESYLATE
     Dosage: UNK

REACTIONS (5)
  - Rash macular [Not Recovered/Not Resolved]
  - Dry skin [Not Recovered/Not Resolved]
  - Rash pruritic [Recovered/Resolved]
  - Dermatitis atopic [Not Recovered/Not Resolved]
  - Therapeutic response decreased [Not Recovered/Not Resolved]

NARRATIVE: CASE EVENT DATE: 20200402
